FAERS Safety Report 24133550 (Version 1)
Quarter: 2024Q3

REPORT INFORMATION
  Report Type: Spontaneous
  Country: CN (occurrence: CN)
  Receive Date: 20240724
  Receipt Date: 20240724
  Transmission Date: 20241016
  Serious: Yes (Life-Threatening, Hospitalization, Other)
  Sender: GE HEALTHCARE
  Company Number: CN-GE HEALTHCARE-2024CSU008104

PATIENT
  Age: 80 Year
  Sex: Male
  Weight: 60 kg

DRUGS (2)
  1. OMNIPAQUE [Suspect]
     Active Substance: IOHEXOL
     Indication: Cerebral artery stent insertion
     Dosage: 80 ML, TOTAL
     Route: 013
     Dates: start: 20240712, end: 20240712
  2. OMNIPAQUE [Suspect]
     Active Substance: IOHEXOL
     Indication: Aneurysm repair

REACTIONS (12)
  - Depressed mood [Not Recovered/Not Resolved]
  - Embolism arterial [Not Recovered/Not Resolved]
  - Infarction [Not Recovered/Not Resolved]
  - Epilepsy [Not Recovered/Not Resolved]
  - Brain oedema [Not Recovered/Not Resolved]
  - Altered state of consciousness [Not Recovered/Not Resolved]
  - Dysarthria [Not Recovered/Not Resolved]
  - Hemiparesis [Not Recovered/Not Resolved]
  - Somnolence [Not Recovered/Not Resolved]
  - Coma [Not Recovered/Not Resolved]
  - Aphasia [Not Recovered/Not Resolved]
  - Contrast encephalopathy [Not Recovered/Not Resolved]

NARRATIVE: CASE EVENT DATE: 20240712
